FAERS Safety Report 11508955 (Version 1)
Quarter: 2015Q3

REPORT INFORMATION
  Report Type: Spontaneous
  Country: US (occurrence: US)
  Receive Date: 20150903
  Receipt Date: 20150903
  Transmission Date: 20151125
  Serious: No
  Sender: FDA-Public Use
  Company Number: US-ELI_LILLY_AND_COMPANY-US201002004763

PATIENT
  Age: 66 Year
  Sex: Male

DRUGS (3)
  1. HUMALOG MIX50/50 [Suspect]
     Active Substance: INSULIN LISPRO
     Indication: DIABETES MELLITUS
  2. HUMALOG [Suspect]
     Active Substance: INSULIN LISPRO
     Indication: DIABETES MELLITUS
     Dosage: 30 U, 3/D
  3. LANTUS [Concomitant]
     Active Substance: INSULIN GLARGINE
     Dosage: 70 U, EACH EVENING

REACTIONS (1)
  - Intercepted drug dispensing error [Recovered/Resolved]

NARRATIVE: CASE EVENT DATE: 20100214
